FAERS Safety Report 8402873-4 (Version None)
Quarter: 2012Q2

REPORT INFORMATION
  Report Type: 
  Country: None (occurrence: None)
  Receive Date: 20120601
  Receipt Date: 20120530
  Transmission Date: 20120825
  Serious: Yes (Other)
  Sender: FDA-Public Use
  Company Number: US-BAYER-2012-053817

PATIENT
  Sex: Female

DRUGS (1)
  1. MAGNEVIST [Suspect]
     Indication: NUCLEAR MAGNETIC RESONANCE IMAGING
     Dosage: UNK
     Dates: start: 20000413, end: 20000413

REACTIONS (5)
  - NEPHROGENIC SYSTEMIC FIBROSIS [None]
  - PAIN [None]
  - DISABILITY [None]
  - ANXIETY [None]
  - INJURY [None]
